FAERS Safety Report 25574039 (Version 1)
Quarter: 2025Q3

REPORT INFORMATION
  Report Type: Spontaneous
  Country: US (occurrence: None)
  Receive Date: 20250717
  Receipt Date: 20250717
  Transmission Date: 20251020
  Serious: Yes (Hospitalization)
  Sender: FDA-CTU
  Company Number: None

PATIENT
  Age: 44 Year
  Sex: Male

DRUGS (3)
  1. EVEROLIMUS [Suspect]
     Active Substance: EVEROLIMUS
     Indication: Renal cancer
     Dosage: 14 MG DAILY ORAL
     Route: 048
     Dates: start: 20250618
  2. NAPROXEN [Suspect]
     Active Substance: NAPROXEN
  3. LENVIMA [Suspect]
     Active Substance: LENVATINIB

REACTIONS (3)
  - Back pain [None]
  - Flank pain [None]
  - Blood potassium increased [None]

NARRATIVE: CASE EVENT DATE: 20250701
